FAERS Safety Report 15301461 (Version 1)
Quarter: 2018Q3

REPORT INFORMATION
  Report Type: Spontaneous
  Country: US (occurrence: US)
  Receive Date: 20180821
  Receipt Date: 20180821
  Transmission Date: 20181010
  Serious: No
  Sender: FDA-Public Use
  Company Number: US-SA-2018SA224322

PATIENT
  Sex: Female

DRUGS (1)
  1. MULTAQ [Suspect]
     Active Substance: DRONEDARONE
     Indication: PROPHYLAXIS
     Route: 065

REACTIONS (2)
  - Heart rate abnormal [Not Recovered/Not Resolved]
  - Withdrawal syndrome [Unknown]
